FAERS Safety Report 7106133-3 (Version None)
Quarter: 2010Q4

REPORT INFORMATION
  Report Type: 
  Country: None (occurrence: None)
  Receive Date: 20101116
  Receipt Date: 20101104
  Transmission Date: 20110411
  Serious: Yes (Other)
  Sender: FDA-Public Use
  Company Number: BR-JNJFOC-20101104713

PATIENT
  Sex: Female
  Weight: 54 kg

DRUGS (7)
  1. TRAMADOL HCL [Suspect]
     Indication: BONE PAIN
     Route: 065
  2. XALATAN [Suspect]
     Indication: GLAUCOMA
     Route: 047
  3. XALATAN [Suspect]
     Route: 047
  4. EUTHYROX [Concomitant]
     Indication: PRODUCT USED FOR UNKNOWN INDICATION
  5. HYDROCHLOROTHIAZIDE [Concomitant]
     Indication: PRODUCT USED FOR UNKNOWN INDICATION
  6. BAMIFIX [Concomitant]
     Indication: PRODUCT USED FOR UNKNOWN INDICATION
  7. AMLODIPINE [Concomitant]
     Indication: PRODUCT USED FOR UNKNOWN INDICATION

REACTIONS (1)
  - FEMUR FRACTURE [None]
